FAERS Safety Report 21935333 (Version 3)
Quarter: 2024Q1

REPORT INFORMATION
  Report Type: Spontaneous
  Country: US (occurrence: US)
  Receive Date: 20230201
  Receipt Date: 20240318
  Transmission Date: 20240410
  Serious: Yes (Other)
  Sender: FDA-Public Use
  Company Number: US-PFIZER INC-2021816740

PATIENT
  Age: 43 Year
  Sex: Female
  Weight: 81.65 kg

DRUGS (1)
  1. SOMAVERT [Suspect]
     Active Substance: PEGVISOMANT
     Indication: Acromegaly
     Dosage: 10 MG, DAILY
     Dates: start: 201103

REACTIONS (3)
  - Hip arthroplasty [Unknown]
  - Poor quality device used [Unknown]
  - Product storage error [Unknown]

NARRATIVE: CASE EVENT DATE: 20221001
